FAERS Safety Report 8224747-4 (Version None)
Quarter: 2012Q1

REPORT INFORMATION
  Report Type: 
  Country: None (occurrence: None)
  Receive Date: 20120321
  Receipt Date: 20120316
  Transmission Date: 20120608
  Serious: Yes (Hospitalization, Other)
  Sender: FDA-Public Use
  Company Number: PHEH2011US01709

PATIENT
  Sex: Female

DRUGS (1)
  1. GILENYA [Suspect]
     Indication: MULTIPLE SCLEROSIS
     Dosage: 0.5 MG, DAILY
     Route: 048
     Dates: start: 20110801

REACTIONS (9)
  - CONVULSION [None]
  - CHEST DISCOMFORT [None]
  - LOSS OF CONSCIOUSNESS [None]
  - TREMOR [None]
  - CHEST PAIN [None]
  - MUSCLE SPASMS [None]
  - HALLUCINATION [None]
  - COGNITIVE DISORDER [None]
  - HERPES ZOSTER [None]
